FAERS Safety Report 9434648 (Version 1)
Quarter: 2013Q3

REPORT INFORMATION
  Report Type: Spontaneous
  Country: US (occurrence: US)
  Receive Date: 20130801
  Receipt Date: 20130801
  Transmission Date: 20140515
  Serious: No
  Sender: FDA-Public Use
  Company Number: US-009507513-1307USA015821

PATIENT
  Sex: Female

DRUGS (1)
  1. ZETIA [Suspect]
     Dosage: HALF OF A DOSE
     Route: 048
     Dates: start: 20130725

REACTIONS (3)
  - Headache [Unknown]
  - Underdose [Unknown]
  - Wrong technique in drug usage process [Unknown]
